FAERS Safety Report 7798977-X (Version None)
Quarter: 2011Q4

REPORT INFORMATION
  Report Type: 
  Country: None (occurrence: None)
  Receive Date: 20111006
  Receipt Date: 20110927
  Transmission Date: 20120403
  Serious: Yes (Other)
  Sender: FDA-Public Use
  Company Number: US-US-EMD SERONO, INC.-7086297

PATIENT
  Sex: Female

DRUGS (1)
  1. REBIF [Suspect]
     Indication: MULTIPLE SCLEROSIS
     Route: 058
     Dates: start: 20090225

REACTIONS (3)
  - GALLBLADDER NON-FUNCTIONING [None]
  - GALLBLADDER DISORDER [None]
  - WHITE BLOOD CELL COUNT DECREASED [None]
